FAERS Safety Report 5201990-X (Version None)
Quarter: 2007Q1

REPORT INFORMATION
  Report Type: 
  Country: None (occurrence: None)
  Receive Date: 20070104
  Receipt Date: 20070104
  Transmission Date: 20070707
  Serious: No
  Sender: FDA-Public Use
  Company Number: None

PATIENT
  Sex: Female
  Weight: 117.9352 kg

DRUGS (1)
  1. VENOFER [Suspect]
     Indication: PREOPERATIVE CARE
     Dosage: VENOFER 300MG   WEEKLY  IV DRIP X 1 DOSE
     Route: 041
     Dates: start: 20070103

REACTIONS (4)
  - FLUSHING [None]
  - HYPERTENSION [None]
  - INFUSION RELATED REACTION [None]
  - VOMITING [None]
